FAERS Safety Report 19960668 (Version 2)
Quarter: 2021Q4

REPORT INFORMATION
  Report Type: Spontaneous
  Country: US (occurrence: US)
  Receive Date: 20211016
  Receipt Date: 20211102
  Transmission Date: 20220303
  Serious: No
  Sender: FDA-Public Use
  Company Number: US-SA-SAC20211013001035

PATIENT
  Sex: Male
  Weight: 77.11 kg

DRUGS (27)
  1. FABRAZYME [Suspect]
     Active Substance: AGALSIDASE BETA
     Indication: Fabry^s disease
     Dosage: 75 MG, QOW
     Route: 041
     Dates: start: 20150423
  2. FABRAZYME [Suspect]
     Active Substance: AGALSIDASE BETA
     Indication: Lipidosis
  3. AMOXICILLIN\CLAVULANATE POTASSIUM [Concomitant]
     Active Substance: AMOXICILLIN\CLAVULANATE POTASSIUM
  4. CORTISPORIN-TC [Concomitant]
     Active Substance: COLISTIN SULFATE\HYDROCORTISONE ACETATE\NEOMYCIN SULFATE\THONZONIUM BROMIDE
  5. CORTISPORIN-TC [Concomitant]
     Active Substance: COLISTIN SULFATE\HYDROCORTISONE ACETATE\NEOMYCIN SULFATE\THONZONIUM BROMIDE
  6. ACETAMINOPHEN [Concomitant]
     Active Substance: ACETAMINOPHEN
  7. ACETAMINOPHEN [Concomitant]
     Active Substance: ACETAMINOPHEN
  8. DIPHENHYDRAMINE [Concomitant]
     Active Substance: DIPHENHYDRAMINE
  9. DIPHENHYDRAMINE [Concomitant]
     Active Substance: DIPHENHYDRAMINE
  10. SODIUM CHLORIDE [Concomitant]
     Active Substance: SODIUM CHLORIDE
  11. SODIUM CHLORIDE [Concomitant]
     Active Substance: SODIUM CHLORIDE
  12. STERILE WATER [Concomitant]
     Active Substance: WATER
  13. STERILE WATER [Concomitant]
     Active Substance: WATER
  14. EPINEPHRINE [Concomitant]
     Active Substance: EPINEPHRINE
  15. EPINEPHRINE [Concomitant]
     Active Substance: EPINEPHRINE
  16. SOLU-MEDROL [Concomitant]
     Active Substance: METHYLPREDNISOLONE SODIUM SUCCINATE
  17. SOLU-MEDROL [Concomitant]
     Active Substance: METHYLPREDNISOLONE SODIUM SUCCINATE
  18. IBUPROFEN [Concomitant]
     Active Substance: IBUPROFEN
  19. IBUPROFEN [Concomitant]
     Active Substance: IBUPROFEN
  20. VITAMIN D3 [Concomitant]
     Active Substance: CHOLECALCIFEROL
  21. VITAMIN D3 [Concomitant]
     Active Substance: CHOLECALCIFEROL
  22. LORATADINE [Concomitant]
     Active Substance: LORATADINE
  23. VITAMINS NOS [Concomitant]
     Active Substance: VITAMINS
  24. VITAMINS NOS [Concomitant]
     Active Substance: VITAMINS
  25. MEDROL [Concomitant]
     Active Substance: METHYLPREDNISOLONE
  26. MEDROL [Concomitant]
     Active Substance: METHYLPREDNISOLONE
  27. CLARITIN [Concomitant]
     Active Substance: LORATADINE

REACTIONS (3)
  - Neuralgia [Unknown]
  - Weight increased [Unknown]
  - Fatigue [Unknown]
